FAERS Safety Report 9121151 (Version 2)
Quarter: 2013Q1

REPORT INFORMATION
  Report Type: Report from Study
  Country: US (occurrence: US)
  Receive Date: 20130226
  Receipt Date: 20130301
  Transmission Date: 20140127
  Serious: No
  Sender: FDA-Public Use
  Company Number: US-VERTEX PHARMACEUTICALS INC.-2013-002541

PATIENT
  Age: 33 Year
  Sex: Female

DRUGS (1)
  1. VX-770 [Suspect]
     Indication: CYSTIC FIBROSIS
     Dosage: 150 MG, BID
     Route: 048
     Dates: start: 20130218

REACTIONS (5)
  - Cough [Unknown]
  - Insomnia [Unknown]
  - Headache [Unknown]
  - Rhinorrhoea [Unknown]
  - Nasopharyngitis [Unknown]
